FAERS Safety Report 17912510 (Version 1)
Quarter: 2020Q2

REPORT INFORMATION
  Report Type: Spontaneous
  Country: ES (occurrence: ES)
  Receive Date: 20200618
  Receipt Date: 20200618
  Transmission Date: 20200714
  Serious: Yes (Other)
  Sender: FDA-Public Use
  Company Number: ES-PFIZER INC-2020235437

PATIENT
  Age: 27 Year
  Sex: Male
  Weight: 75 kg

DRUGS (4)
  1. VINCRISTINA PFIZER [Suspect]
     Active Substance: VINCRISTINE
     Indication: LYMPHOMA
     Dosage: 0.4 MG/M2, 1X/DAY (0.4 MG/M2/D)
     Route: 042
     Dates: start: 20200506, end: 20200509
  2. CYCLOPHOSPHAMIDE. [Suspect]
     Active Substance: CYCLOPHOSPHAMIDE
     Indication: LYMPHOMA
     Dosage: 750 MG/M2, SINGLE (750 MG/M2)
     Route: 042
     Dates: start: 20200510, end: 20200510
  3. ETOPOSIDE. [Suspect]
     Active Substance: ETOPOSIDE
     Indication: LYMPHOMA
     Dosage: 50 MG/M2, 1X/DAY (50MG/M2/D)
     Route: 042
     Dates: start: 20200506, end: 20200509
  4. DOXORUBICIN HCL [Suspect]
     Active Substance: DOXORUBICIN HYDROCHLORIDE
     Indication: LYMPHOMA
     Dosage: 10 MG/M2
     Route: 042
     Dates: start: 20200506, end: 20200509

REACTIONS (1)
  - Hepatitis acute [Recovering/Resolving]

NARRATIVE: CASE EVENT DATE: 20200511
